FAERS Safety Report 9477736 (Version 2)
Quarter: 2013Q3

REPORT INFORMATION
  Report Type: Spontaneous
  Country: US (occurrence: US)
  Receive Date: 20130827
  Receipt Date: 20130915
  Transmission Date: 20140515
  Serious: No
  Sender: FDA-Public Use
  Company Number: US-009507513-1308USA011105

PATIENT
  Age: 21 Year
  Sex: Female
  Weight: 100.91 kg

DRUGS (2)
  1. IMPLANON [Suspect]
     Indication: CONTRACEPTION
     Dosage: 1 ROD/ 3 YEARS
     Route: 059
     Dates: start: 20100422, end: 20130822
  2. NEXPLANON [Concomitant]
     Dosage: 1 DF, UNK
     Route: 059
     Dates: start: 20130822

REACTIONS (3)
  - Device breakage [Unknown]
  - Incorrect drug administration duration [Unknown]
  - Product quality issue [Unknown]
